FAERS Safety Report 13529673 (Version 1)
Quarter: 2017Q2

REPORT INFORMATION
  Report Type: Spontaneous
  Country: US (occurrence: US)
  Receive Date: 20170509
  Receipt Date: 20170509
  Transmission Date: 20170830
  Serious: No
  Sender: FDA-Public Use
  Company Number: US-ROCHE-GNE302988

PATIENT
  Age: 33 Year
  Sex: Female
  Weight: 133.93 kg

DRUGS (2)
  1. XOLAIR [Suspect]
     Active Substance: OMALIZUMAB
     Indication: ASTHMA
     Dosage: 150 MG, 2/MONTH
     Route: 058
     Dates: start: 20100324
  2. PREDNISONE. [Concomitant]
     Active Substance: PREDNISONE
     Indication: PRODUCT USED FOR UNKNOWN INDICATION
     Dosage: 60 MG, UNK
     Route: 065

REACTIONS (3)
  - Nausea [None]
  - Asthma [Unknown]
  - Headache [None]

NARRATIVE: CASE EVENT DATE: 20100324
